FAERS Safety Report 4956639-8 (Version None)
Quarter: 2006Q1

REPORT INFORMATION
  Report Type: 
  Country: None (occurrence: None)
  Receive Date: 20060329
  Receipt Date: 20051215
  Transmission Date: 20060701
  Serious: Yes (Hospitalization, Disabling)
  Sender: FDA-Public Use
  Company Number: US-MERCK-0512USA02548

PATIENT
  Age: 47 Year
  Sex: Female
  Weight: 64 kg

DRUGS (13)
  1. ENDOCET [Concomitant]
     Route: 065
     Dates: start: 20030721, end: 20030901
  2. VIOXX [Suspect]
     Indication: BURSITIS
     Route: 048
     Dates: start: 20030829, end: 20040614
  3. PHENYTOIN [Concomitant]
     Route: 065
  4. PROTONIX [Concomitant]
     Route: 065
  5. LOVENOX [Concomitant]
     Route: 065
     Dates: start: 20030721, end: 20041201
  6. DILANTIN [Concomitant]
     Route: 065
  7. ACETAMINOPHEN [Concomitant]
     Route: 065
     Dates: start: 20020201, end: 20040920
  8. ACETAMINOPHEN AND PROPOXYPHENE NAPSYLATE [Concomitant]
     Route: 065
  9. GUAIFENEX [Concomitant]
     Route: 065
  10. BENZONATATE [Concomitant]
     Route: 065
  11. TRIMOX [Concomitant]
     Route: 065
  12. NEOMYCIN SULFATE AND POLYMYXIN B SULFATE [Concomitant]
     Route: 065
  13. NEURONTIN [Concomitant]
     Route: 065
     Dates: start: 20031024, end: 20031201

REACTIONS (6)
  - BLOOD CHOLESTEROL INCREASED [None]
  - CORONARY ARTERY DISEASE [None]
  - HYPERTENSION [None]
  - HYPOKALAEMIA [None]
  - MYOCARDIAL INFARCTION [None]
  - PAINFUL RESPIRATION [None]
